FAERS Safety Report 20855870 (Version 1)
Quarter: 2022Q2

REPORT INFORMATION
  Report Type: Spontaneous
  Country: US (occurrence: None)
  Receive Date: 20220520
  Receipt Date: 20220520
  Transmission Date: 20220721
  Serious: No
  Sender: FDA-Public Use
  Company Number: 2022A160714

PATIENT
  Age: 24576 Day
  Sex: Female

DRUGS (1)
  1. SYMBICORT [Suspect]
     Active Substance: BUDESONIDE\FORMOTEROL FUMARATE DIHYDRATE
     Indication: Chronic obstructive pulmonary disease
     Dosage: 80/4.5 MCG TWO PUFFS DAILY
     Route: 055
     Dates: end: 20220422

REACTIONS (7)
  - Throat irritation [Recovered/Resolved]
  - Incorrect dose administered by device [Unknown]
  - Device use issue [Recovered/Resolved]
  - Intentional device misuse [Unknown]
  - Off label use [Recovered/Resolved]
  - Inability to afford medication [Unknown]
  - Device malfunction [Unknown]

NARRATIVE: CASE EVENT DATE: 20220421
